FAERS Safety Report 7491747-1 (Version None)
Quarter: 2011Q2

REPORT INFORMATION
  Report Type: 
  Country: None (occurrence: None)
  Receive Date: 20110518
  Receipt Date: 20110518
  Transmission Date: 20111010
  Serious: No
  Sender: FDA-Public Use
  Company Number: None

PATIENT
  Age: 65 Year
  Sex: Female

DRUGS (1)
  1. CIMZIA [Suspect]
     Indication: ENTERITIS
     Dosage: 2X200MG SYRINGE Q4W SQ
     Route: 058
     Dates: start: 20110209, end: 20110428

REACTIONS (2)
  - URINARY TRACT INFECTION [None]
  - HYPOTENSION [None]
